FAERS Safety Report 4464672-8 (Version None)
Quarter: 2004Q3

REPORT INFORMATION
  Report Type: 
  Country: None (occurrence: None)
  Receive Date: 20040929
  Receipt Date: 20040916
  Transmission Date: 20050211
  Serious: Yes (Hospitalization)
  Sender: FDA-Public Use
  Company Number: FR_040904792

PATIENT
  Age: 49 Year
  Sex: Female

DRUGS (6)
  1. ZYPREXA [Suspect]
     Dosage: 10 MG/1 DAY
     Dates: end: 20040601
  2. DEPAKOTE [Concomitant]
  3. ZOLPIDEM TARTRATE [Concomitant]
  4. OMEPRAZOLE [Concomitant]
  5. TRANXENE [Concomitant]
  6. TERCIAN (CYAMEMAZINE) [Concomitant]

REACTIONS (1)
  - PURPURA [None]
